FAERS Safety Report 5422716-0 (Version None)
Quarter: 2007Q3

REPORT INFORMATION
  Report Type: 
  Country: None (occurrence: None)
  Receive Date: 20070820
  Receipt Date: 20070810
  Transmission Date: 20080115
  Serious: Yes (Other)
  Sender: FDA-Public Use
  Company Number: S07-USA-03453-01

PATIENT
  Age: 60 Year
  Sex: Female

DRUGS (4)
  1. LEXAPRO [Suspect]
     Indication: ANXIETY
     Dosage: 20 MG QD PO
     Route: 048
     Dates: start: 20060101
  2. LEXAPRO [Suspect]
     Indication: DEPRESSION
     Dosage: 20 MG QD PO
     Route: 048
     Dates: start: 20060101
  3. FOSAMAX [Concomitant]
  4. TOFRANIL [Concomitant]

REACTIONS (3)
  - ABASIA [None]
  - GAIT DISTURBANCE [None]
  - PARAPARESIS [None]
